FAERS Safety Report 5694029-3 (Version None)
Quarter: 2008Q2

REPORT INFORMATION
  Report Type: 
  Country: None (occurrence: None)
  Receive Date: 20080401
  Receipt Date: 20080321
  Transmission Date: 20081010
  Serious: Yes (Other)
  Sender: FDA-Public Use
  Company Number: 2008007198

PATIENT
  Age: 56 Year
  Sex: Male
  Weight: 99.8 kg

DRUGS (1)
  1. ROGAINE 5 [Suspect]
     Indication: ALOPECIA
     Dosage: A SQUIRT, ONCE, IN THE MORNING, TOPICAL
     Route: 061
     Dates: start: 20080320, end: 20080320

REACTIONS (5)
  - EYE IRRITATION [None]
  - EYE PAIN [None]
  - EYE PRURITUS [None]
  - EYE SWELLING [None]
  - VISUAL DISTURBANCE [None]
